FAERS Safety Report 18840131 (Version 2)
Quarter: 2021Q1

REPORT INFORMATION
  Report Type: Spontaneous
  Country: BE (occurrence: BE)
  Receive Date: 20210204
  Receipt Date: 20210303
  Transmission Date: 20210419
  Serious: Yes (Hospitalization)
  Sender: FDA-Public Use
  Company Number: BE-AUROBINDO-AUR-APL-2021-004024

PATIENT
  Age: 62 Year
  Sex: Female
  Weight: 63 kg

DRUGS (4)
  1. LERIVON [Concomitant]
     Active Substance: MIANSERIN HYDROCHLORIDE
     Indication: SLEEP DISORDER
     Dosage: 0.5 DOSAGE FORM, ONCE A DAY (TAKEN BEFORE GOING TO BED)
     Route: 048
     Dates: start: 2005
  2. L?THYROXINE [Concomitant]
     Active Substance: LEVOTHYROXINE
     Indication: GOITRE
     Dosage: TAKEN IN THE MORNING ON AN EMPTY STOMACH
     Route: 048
     Dates: start: 2009
  3. D?CURE [Concomitant]
     Active Substance: CHOLECALCIFEROL
     Indication: OSTEOPOROSIS
     Dosage: 1 DOSAGE FORM EVERY TWO WEEKS TAKEN FOR ABOUT 3 YEARS
     Route: 048
  4. FLUCONAZOL APOTEX 200MG [Suspect]
     Active Substance: FLUCONAZOLE
     Indication: ONYCHOMYCOSIS
     Dosage: 1 DOSAGE FORM, EVERY WEEK (TAKEN IN THE EVENING)
     Route: 048
     Dates: start: 20191209, end: 20191223

REACTIONS (6)
  - Vertigo [Unknown]
  - Fatigue [Unknown]
  - Sleep disorder [Unknown]
  - Insomnia [Unknown]
  - Dysstasia [Unknown]
  - Nausea [Unknown]

NARRATIVE: CASE EVENT DATE: 20191210
